FAERS Safety Report 13368763 (Version 1)
Quarter: 2017Q1

REPORT INFORMATION
  Report Type: Spontaneous
  Country: IT (occurrence: IT)
  Receive Date: 20170324
  Receipt Date: 20170324
  Transmission Date: 20170429
  Serious: Yes (Hospitalization, Other)
  Sender: FDA-Public Use
  Company Number: IT-ASTELLAS-2017US011578

PATIENT
  Age: 19 Year
  Sex: Male

DRUGS (2)
  1. CRESEMBA [Suspect]
     Active Substance: ISAVUCONAZONIUM SULFATE
     Dosage: 200 MG, ONCE DAILY FOR FOUR DAYS (DAY 3 TO DAY 6)
     Route: 042
  2. CRESEMBA [Suspect]
     Active Substance: ISAVUCONAZONIUM SULFATE
     Indication: SINUSITIS FUNGAL
     Dosage: 600 MG, ONCE DAILY FOR TWO DAYS (DAY1 AND DAY 2) (LOADING DOSE)
     Route: 042

REACTIONS (2)
  - Venoocclusive liver disease [Unknown]
  - Hepatotoxicity [Not Recovered/Not Resolved]
